FAERS Safety Report 5137880-0 (Version None)
Quarter: 2006Q4

REPORT INFORMATION
  Report Type: 
  Country: None (occurrence: None)
  Receive Date: 20061030
  Receipt Date: 20060202
  Transmission Date: 20070319
  Serious: No
  Sender: FDA-Public Use
  Company Number: US-GLAXOSMITHKLINE-A0592132A

PATIENT
  Age: 73 Year
  Sex: Female

DRUGS (6)
  1. ADVAIR HFA [Suspect]
     Indication: ASTHMA
     Dosage: 1PUFF TWICE PER DAY
     Route: 055
     Dates: start: 20051228
  2. TOPROL-XL [Concomitant]
  3. ALTACE [Concomitant]
  4. NORVASC [Concomitant]
  5. CALCIUM SUPPLEMENT [Concomitant]
     Route: 065
  6. ASPIRIN [Concomitant]

REACTIONS (1)
  - PHARYNGOLARYNGEAL PAIN [None]
